FAERS Safety Report 19042517 (Version 1)
Quarter: 2021Q1

REPORT INFORMATION
  Report Type: Spontaneous
  Country: JP (occurrence: JP)
  Receive Date: 20210323
  Receipt Date: 20210323
  Transmission Date: 20210420
  Serious: Yes (Other)
  Sender: FDA-Public Use
  Company Number: JP-ROCHE-2794115

PATIENT
  Age: 86 Year
  Sex: Male

DRUGS (1)
  1. ACTEMRA [Suspect]
     Active Substance: TOCILIZUMAB
     Indication: COVID-19
     Dosage: MOST RECENT DOSE PRIOR TO AE 12/MAR/2021
     Route: 041
     Dates: start: 20210312

REACTIONS (3)
  - Disease progression [Unknown]
  - Off label use [Unknown]
  - Intentional product use issue [Unknown]
